FAERS Safety Report 10248612 (Version 1)
Quarter: 2014Q2

REPORT INFORMATION
  Report Type: Spontaneous
  Country: US (occurrence: None)
  Receive Date: 20140617
  Receipt Date: 20140617
  Transmission Date: 20141212
  Serious: Yes (Other)
  Sender: FDA-Public Use
  Company Number: None

PATIENT
  Age: 55 Year
  Sex: Male

DRUGS (2)
  1. SOVALDI [Suspect]
     Indication: HEPATITIS C
     Dosage: 28 QD PO
     Route: 048
     Dates: start: 20140404
  2. OLYSIO [Suspect]
     Dosage: 28 QD PO
     Route: 048
     Dates: start: 20140404

REACTIONS (1)
  - Psoriasis [None]
